FAERS Safety Report 20415216 (Version 1)
Quarter: 2022Q1

REPORT INFORMATION
  Report Type: Spontaneous
  Country: MX (occurrence: None)
  Receive Date: 20220202
  Receipt Date: 20220202
  Transmission Date: 20220423
  Serious: Yes (Other)
  Sender: FDA-Public Use
  Company Number: MX-ROCHE-3015659

PATIENT
  Age: 33 Year
  Sex: Female
  Weight: 82.2 kg

DRUGS (14)
  1. HERCEPTIN [Suspect]
     Active Substance: TRASTUZUMAB
     Indication: HER2 positive breast cancer
     Dosage: DOSE WAS NOT REPORTED
     Route: 065
  2. PERJETA [Suspect]
     Active Substance: PERTUZUMAB
     Indication: HER2 positive breast cancer
     Dosage: DOSE WAS NOT REPORTED
     Route: 042
  3. PACLITAXEL [Concomitant]
     Active Substance: PACLITAXEL
     Indication: HER2 positive breast cancer
     Dosage: 12 CYCLES; DOSE WAS NOT REPORTED
     Route: 065
  4. AVAPENA [Concomitant]
     Indication: Premedication
     Dosage: 4 CYCLES; DOSE WAS NOT REPORTED, 1 AMPOULE
     Route: 065
  5. ALIN [DEXAMETHASONE] [Concomitant]
     Indication: Premedication
     Dosage: 2 AMPOULES
     Route: 065
  6. PALONOSETRON HYDROCHLORIDE [Concomitant]
     Active Substance: PALONOSETRON HYDROCHLORIDE
     Indication: Premedication
     Dosage: 1 AMPOULES
     Route: 065
  7. METICORTEN [Concomitant]
     Active Substance: PREDNISONE
     Dosage: FOR TWO DAYS
     Route: 065
  8. ONDANSETRON [Concomitant]
     Active Substance: ONDANSETRON
     Dosage: FOR TWO DAYS
     Route: 065
  9. APREPITANT [Concomitant]
     Active Substance: APREPITANT
     Dosage: BEFORE TREATMENT
     Route: 065
  10. APREPITANT [Concomitant]
     Active Substance: APREPITANT
     Dosage: AFTER TREATMENT FOR TWO DAYS
  11. LETROZOLE [Concomitant]
     Active Substance: LETROZOLE
     Route: 065
  12. ZOLADEX [Concomitant]
     Active Substance: GOSERELIN ACETATE
     Route: 065
  13. DOXORUBICIN [Concomitant]
     Active Substance: DOXORUBICIN
     Dosage: 4 CYCLES; DOSE WAS NOT REPORTED
     Route: 065
  14. CYCLOPHOSPHAMIDE [Concomitant]
     Active Substance: CYCLOPHOSPHAMIDE
     Dosage: 4 CYCLES; DOSE WAS NOT REPORTED
     Route: 065

REACTIONS (1)
  - Bone pain [Unknown]

NARRATIVE: CASE EVENT DATE: 20200701
